FAERS Safety Report 23494850 (Version 2)
Quarter: 2024Q1

REPORT INFORMATION
  Report Type: Report from Study
  Country: JP (occurrence: None)
  Receive Date: 20240207
  Receipt Date: 20240218
  Transmission Date: 20240410
  Serious: Yes (Hospitalization)
  Sender: FDA-Public Use
  Company Number: 2024A010876

PATIENT
  Age: 88 Year
  Sex: Female
  Weight: 41 kg

DRUGS (10)
  1. ONDEXXYA [Suspect]
     Active Substance: ANDEXANET ALFA
     Indication: Cerebral haemorrhage
     Dosage: 1760 MG
     Route: 042
     Dates: start: 20220917, end: 20220917
  2. XARELTO [Concomitant]
     Active Substance: RIVAROXABAN
     Indication: Ischaemic stroke
     Route: 048
     Dates: end: 20220917
  3. EDOXABAN TOSYLATE [Concomitant]
     Active Substance: EDOXABAN TOSYLATE
     Route: 048
     Dates: start: 20220921
  4. ROZEREM [Concomitant]
     Active Substance: RAMELTEON
     Indication: Anxiety disorder
     Route: 048
     Dates: start: 20220920
  5. LANSOPRAZOLE [Concomitant]
     Active Substance: LANSOPRAZOLE
     Indication: Prophylaxis
     Route: 048
     Dates: start: 20220921
  6. URAPIDIL [Concomitant]
     Active Substance: URAPIDIL
     Indication: Cardiac failure congestive
     Route: 048
     Dates: start: 20220921
  7. ISOSORBIDE DINITRATE [Concomitant]
     Active Substance: ISOSORBIDE DINITRATE
     Indication: Myocardial infarction
     Route: 062
     Dates: start: 20220923
  8. ATORVASTATIN [Concomitant]
     Active Substance: ATORVASTATIN
     Indication: Myocardial infarction
     Route: 048
     Dates: start: 20220923
  9. HERBALS [Concomitant]
     Active Substance: HERBALS
     Indication: Anxiety disorder
     Route: 048
     Dates: start: 20221004
  10. DAYVIGO [Concomitant]
     Active Substance: LEMBOREXANT
     Indication: Anxiety disorder
     Route: 048
     Dates: start: 20231008

REACTIONS (5)
  - Cerebral infarction [Recovered/Resolved with Sequelae]
  - Myocardial infarction [Recovering/Resolving]
  - Hyponatraemia [Recovering/Resolving]
  - Hypokalaemia [Recovered/Resolved]
  - Fibrin D dimer increased [Recovered/Resolved]

NARRATIVE: CASE EVENT DATE: 20220917
